FAERS Safety Report 12328458 (Version 1)
Quarter: 2016Q2

REPORT INFORMATION
  Report Type: Spontaneous
  Country: US (occurrence: US)
  Receive Date: 20160503
  Receipt Date: 20160503
  Transmission Date: 20160815
  Serious: No
  Sender: FDA-Public Use
  Company Number: US-BEH-2014047652

PATIENT
  Sex: Female
  Weight: 27 kg

DRUGS (31)
  1. DIPHENHYDRAMINE. [Concomitant]
     Active Substance: DIPHENHYDRAMINE
  2. NASONEX [Concomitant]
     Active Substance: MOMETASONE FUROATE
  3. VITAMIN E [Concomitant]
     Active Substance: .ALPHA.-TOCOPHEROL
  4. DALLERGY DROPS [Concomitant]
     Active Substance: CHLORPHENIRAMINE MALEATE\METHSCOPOLAMINE NITRATE\PHENYLEPHRINE HYDROCHLORIDE
  5. PATANASE [Concomitant]
     Active Substance: OLOPATADINE HYDROCHLORIDE
  6. SINGULAIR [Concomitant]
     Active Substance: MONTELUKAST SODIUM
  7. CLONAZEPAM. [Concomitant]
     Active Substance: CLONAZEPAM
  8. CEFDINIR. [Concomitant]
     Active Substance: CEFDINIR
  9. INTUNIV [Concomitant]
     Active Substance: GUANFACINE HYDROCHLORIDE
  10. SENOKOT-S [Concomitant]
     Active Substance: DOCUSATE SODIUM\SENNOSIDES
  11. BANZEL [Concomitant]
     Active Substance: RUFINAMIDE
  12. GABAPENTIN. [Concomitant]
     Active Substance: GABAPENTIN
  13. PREVACID [Concomitant]
     Active Substance: LANSOPRAZOLE
  14. IRON [Concomitant]
     Active Substance: IRON
  15. HIZENTRA [Suspect]
     Active Substance: HUMAN IMMUNOGLOBULIN G
     Indication: HYPOGAMMAGLOBULINAEMIA
     Route: 058
     Dates: start: 20150225
  16. TOPIRAMATE. [Concomitant]
     Active Substance: TOPIRAMATE
  17. AMITRIPTYLINE [Concomitant]
     Active Substance: AMITRIPTYLINE
  18. ZYRTEC [Concomitant]
     Active Substance: CETIRIZINE HYDROCHLORIDE
  19. EPIPEN [Concomitant]
     Active Substance: EPINEPHRINE
  20. DEPO-PROVERA [Concomitant]
     Active Substance: MEDROXYPROGESTERONE ACETATE
  21. FLONASE [Concomitant]
     Active Substance: FLUTICASONE PROPIONATE
  22. ADVAIR HFA [Concomitant]
     Active Substance: FLUTICASONE PROPIONATE\SALMETEROL XINAFOATE
  23. DIASTAT ACUDIAL [Concomitant]
     Active Substance: DIAZEPAM
  24. HIZENTRA [Suspect]
     Active Substance: HUMAN IMMUNOGLOBULIN G
     Indication: IMMUNODEFICIENCY
     Route: 058
  25. GLYCOLAX [Concomitant]
     Active Substance: POLYETHYLENE GLYCOL 3350
  26. ALBUTEROL. [Concomitant]
     Active Substance: ALBUTEROL
  27. VITAMIN C [Concomitant]
     Active Substance: ASCORBIC ACID
  28. LIDOCAINE/PRILOCAINE [Concomitant]
  29. CHILDRENS TYLENOL [Concomitant]
     Active Substance: ACETAMINOPHEN
  30. PREDNISONE. [Concomitant]
     Active Substance: PREDNISONE
  31. CULTURELLE [Concomitant]
     Active Substance: LACTOBACILLUS RHAMNOSUS

REACTIONS (2)
  - Headache [Recovered/Resolved]
  - Headache [Unknown]
